FAERS Safety Report 18863686 (Version 1)
Quarter: 2021Q1

REPORT INFORMATION
  Report Type: Report from Study
  Country: CN (occurrence: CN)
  Receive Date: 20210209
  Receipt Date: 20210209
  Transmission Date: 20210420
  Serious: Yes (Life-Threatening, Hospitalization, Other)
  Sender: FDA-Public Use
  Company Number: CN-ALS-000172

PATIENT
  Age: 57 Year
  Sex: Male

DRUGS (11)
  1. THYMALFASIN [Suspect]
     Active Substance: THYMALFASIN
     Indication: IMMUNE SYSTEM DISORDER
     Route: 065
  2. METOPROLOL. [Suspect]
     Active Substance: METOPROLOL
     Indication: HYPERTENSION
     Route: 065
  3. QUETIAPINE. [Suspect]
     Active Substance: QUETIAPINE
     Indication: SCHIZOPHRENIA
     Route: 065
  4. GLIBENCLAMIDE [Suspect]
     Active Substance: GLYBURIDE
     Indication: TYPE 2 DIABETES MELLITUS
     Route: 065
  5. METFORMIN [Suspect]
     Active Substance: METFORMIN HYDROCHLORIDE
     Indication: TYPE 2 DIABETES MELLITUS
     Route: 065
  6. INSULIN [Suspect]
     Active Substance: INSULIN NOS
     Indication: TYPE 2 DIABETES MELLITUS
     Route: 065
  7. LOPINAVIR [Suspect]
     Active Substance: LOPINAVIR
     Indication: VIRAL INFECTION
     Route: 065
  8. IMMUNOGLOBULIN I.V [Suspect]
     Active Substance: HUMAN IMMUNOGLOBULIN G
     Indication: IMMUNE SYSTEM DISORDER
     Route: 042
  9. NIFEDIPINE. [Suspect]
     Active Substance: NIFEDIPINE
     Indication: HYPERTENSION
     Route: 065
  10. RISPERIDONE. [Suspect]
     Active Substance: RISPERIDONE
     Indication: SCHIZOPHRENIA
     Route: 065
  11. RITONAVIR. [Suspect]
     Active Substance: RITONAVIR
     Indication: VIRAL INFECTION
     Route: 065

REACTIONS (21)
  - Liver injury [Recovering/Resolving]
  - Paranoia [Recovering/Resolving]
  - Electrolyte imbalance [Recovering/Resolving]
  - Blood fibrinogen increased [Recovering/Resolving]
  - Disease progression [Recovering/Resolving]
  - Acute respiratory distress syndrome [Recovering/Resolving]
  - Condition aggravated [Recovering/Resolving]
  - Panic attack [Recovering/Resolving]
  - Cerebral infarction [Recovering/Resolving]
  - Respiratory failure [Recovering/Resolving]
  - Aggression [Recovering/Resolving]
  - Headache [Recovering/Resolving]
  - COVID-19 [Recovered/Resolved]
  - Venous thrombosis [Recovering/Resolving]
  - Pneumonitis [Recovered/Resolved]
  - Hyperlactacidaemia [Recovering/Resolving]
  - Blood albumin decreased [Recovering/Resolving]
  - Depression [Recovering/Resolving]
  - Anxiety [Recovering/Resolving]
  - Insomnia [Recovering/Resolving]
  - Mood altered [Recovering/Resolving]
